APPROVED DRUG PRODUCT: PROAMATINE
Active Ingredient: MIDODRINE HYDROCHLORIDE
Strength: 5MG **Federal Register determination that product was not discontinued or withdrawn for safety or effectiveness reasons**
Dosage Form/Route: TABLET;ORAL
Application: N019815 | Product #002
Applicant: TAKEDA PHARMACEUTICALS USA INC
Approved: Sep 6, 1996 | RLD: Yes | RS: No | Type: DISCN